FAERS Safety Report 7718766-1 (Version None)
Quarter: 2011Q3

REPORT INFORMATION
  Report Type: 
  Country: None (occurrence: None)
  Receive Date: 20110830
  Receipt Date: 20110823
  Transmission Date: 20111222
  Serious: Yes (Other)
  Sender: FDA-Public Use
  Company Number: DE-PFIZER INC-2011194844

PATIENT
  Age: 2 Year
  Sex: Male

DRUGS (1)
  1. ZYVOX [Suspect]

REACTIONS (1)
  - PETECHIAE [None]
